FAERS Safety Report 18243877 (Version 10)
Quarter: 2022Q3

REPORT INFORMATION
  Report Type: Report from Study
  Country: GB (occurrence: GB)
  Receive Date: 20200908
  Receipt Date: 20220803
  Transmission Date: 20221027
  Serious: Yes (Other)
  Sender: FDA-Public Use
  Company Number: NVSC2020GB244229

PATIENT
  Sex: Female

DRUGS (1)
  1. KISQALI [Suspect]
     Active Substance: RIBOCICLIB
     Indication: Breast cancer
     Dosage: 200 MG, BID
     Route: 048
     Dates: start: 20190925

REACTIONS (16)
  - Oral candidiasis [Not Recovered/Not Resolved]
  - Full blood count abnormal [Unknown]
  - Glossodynia [Unknown]
  - Respiratory tract infection [Not Recovered/Not Resolved]
  - Sinusitis [Not Recovered/Not Resolved]
  - Blood pressure increased [Not Recovered/Not Resolved]
  - Depressed mood [Unknown]
  - Discomfort [Not Recovered/Not Resolved]
  - Oropharyngeal pain [Unknown]
  - Pharyngitis [Unknown]
  - Headache [Unknown]
  - Back pain [Not Recovered/Not Resolved]
  - Fatigue [Unknown]
  - Lower respiratory tract infection [Recovering/Resolving]
  - Nausea [Unknown]
  - Vomiting [Unknown]

NARRATIVE: CASE EVENT DATE: 20200804
